FAERS Safety Report 9115912 (Version 1)
Quarter: 2013Q1

REPORT INFORMATION
  Report Type: Spontaneous
  Country: FR (occurrence: FR)
  Receive Date: 20130225
  Receipt Date: 20130225
  Transmission Date: 20140127
  Serious: Yes (Death)
  Sender: FDA-Public Use
  Company Number: FR-GLAXOSMITHKLINE-B0868135A

PATIENT
  Age: 70 Year
  Sex: Male

DRUGS (7)
  1. LAMICTAL [Suspect]
     Indication: EPILEPSY
     Route: 048
     Dates: start: 20130118, end: 20130130
  2. CLAMOXYL [Suspect]
     Indication: PRODUCT USED FOR UNKNOWN INDICATION
     Dosage: 3G PER DAY
     Route: 048
     Dates: start: 20130130, end: 20130201
  3. COAPROVEL [Concomitant]
     Route: 065
  4. CRESTOR [Concomitant]
     Route: 065
  5. KARDEGIC [Concomitant]
     Route: 065
  6. PREVISCAN [Concomitant]
     Route: 065
  7. BISOPROLOL [Concomitant]
     Route: 065

REACTIONS (19)
  - Toxic epidermal necrolysis [Fatal]
  - Influenza like illness [Fatal]
  - Hyperthermia [Fatal]
  - Chills [Fatal]
  - Rales [Fatal]
  - Rash maculo-papular [Fatal]
  - Inflammation [Fatal]
  - Face oedema [Fatal]
  - Conjunctivitis [Fatal]
  - Oral disorder [Fatal]
  - Dermatitis bullous [Fatal]
  - Skin disorder [Fatal]
  - Pain [Fatal]
  - Hepatitis [Fatal]
  - Atrial fibrillation [Fatal]
  - Altered state of consciousness [Fatal]
  - Renal failure acute [Fatal]
  - Hepatocellular injury [Fatal]
  - Pulmonary hilum mass [Fatal]
